FAERS Safety Report 7456388-0 (Version None)
Quarter: 2011Q2

REPORT INFORMATION
  Report Type: 
  Country: None (occurrence: None)
  Receive Date: 20110426
  Receipt Date: 20110420
  Transmission Date: 20111010
  Serious: Yes (Death)
  Sender: FDA-Public Use
  Company Number: 20110011USST

PATIENT
  Age: 16 Year

DRUGS (10)
  1. BLEOMYCIN SULFATE [Concomitant]
  2. PREDNISONE [Concomitant]
  3. MATULANE [Suspect]
     Indication: HODGKIN'S DISEASE
  4. VINCRISTINE [Concomitant]
  5. VINBLASTINE SULFATE [Concomitant]
  6. DACARBAZINE [Concomitant]
  7. CYCLOPHOSPHAMIDE [Concomitant]
  8. RADIOTHERAPY [Concomitant]
  9. ETOPOSIDE [Concomitant]
  10. DOXORUBICIN HCL [Concomitant]

REACTIONS (4)
  - MULTI-ORGAN FAILURE [None]
  - PANCYTOPENIA [None]
  - GENERAL PHYSICAL HEALTH DETERIORATION [None]
  - PROGRESSIVE MULTIFOCAL LEUKOENCEPHALOPATHY [None]
